FAERS Safety Report 5245049-4 (Version None)
Quarter: 2007Q1

REPORT INFORMATION
  Report Type: 
  Country: None (occurrence: None)
  Receive Date: 20070223
  Receipt Date: 20070212
  Transmission Date: 20070707
  Serious: Yes (Hospitalization)
  Sender: FDA-Public Use
  Company Number: PHBS2007HU02676

PATIENT
  Age: 62 Year
  Sex: Male

DRUGS (18)
  1. CLOZAPINE [Suspect]
     Dosage: 150 MG/DAY
  2. CLOZAPINE [Suspect]
     Dosage: 100 MG/DAY
  3. HALOPERIDOL [Concomitant]
     Dosage: 9 MG/DAY
  4. OLANZAPINE [Concomitant]
     Dosage: 5 MG/DAY
  5. OLANZAPINE [Concomitant]
     Dosage: 30 MG/DAY
  6. LEVOMEPROMAZINE [Concomitant]
     Dosage: 150 MG/DAY
  7. AMOBARBITAL SODIUM [Concomitant]
     Dosage: 400 MG/DAY
  8. MEPROBAMATE [Concomitant]
     Dosage: 1200 MG/DAY
  9. CLONAZEPAM [Concomitant]
     Dosage: 6 MG/DAY
  10. CLONAZEPAM [Concomitant]
     Dosage: 1 MG/DAY
  11. RISPERDAL [Concomitant]
     Dosage: 8 MG/DAY
  12. RISPERDAL [Concomitant]
     Dosage: 37.5 MG
  13. FUROSEMIDE [Concomitant]
     Dosage: 40 MG EVERY OTHER DAY
  14. POTASSIUM CHLORATE [Concomitant]
     Dosage: 1000 MG EVERY OTHER DAY
  15. THEOPHYLLINE [Concomitant]
     Dosage: 300 MG/DAY
  16. SALBUTAMOL [Concomitant]
     Indication: DYSPNOEA
     Dosage: PRN
  17. VINPOCETINE [Concomitant]
     Dosage: 30 MG/DAY
  18. VINPOCETINE [Concomitant]
     Dosage: 30 MG/DAY

REACTIONS (17)
  - ABDOMINAL DISTENSION [None]
  - ABDOMINAL SYMPTOM [None]
  - AGGRESSION [None]
  - AGITATION [None]
  - ANXIETY [None]
  - BLOOD CREATININE INCREASED [None]
  - BLOOD UREA INCREASED [None]
  - CARDIAC FAILURE [None]
  - ERYSIPELAS [None]
  - GASTRIC ATONY [None]
  - ILEUS PARALYTIC [None]
  - INTUBATION [None]
  - LAPAROTOMY [None]
  - LIFE SUPPORT [None]
  - PSYCHOTIC DISORDER [None]
  - RESPIRATORY FAILURE [None]
  - VOMITING [None]
